FAERS Safety Report 8554926-8 (Version None)
Quarter: 2012Q3

REPORT INFORMATION
  Report Type: 
  Country: None (occurrence: None)
  Receive Date: 20120731
  Receipt Date: 20120716
  Transmission Date: 20120928
  Serious: No
  Sender: FDA-Public Use
  Company Number: US-ASTRAZENECA-2012SE49799

PATIENT
  Age: 72 Year
  Sex: Female

DRUGS (1)
  1. CRESTOR [Suspect]
     Route: 048

REACTIONS (5)
  - INCREASED BRONCHIAL SECRETION [None]
  - ARTHROPOD BITE [None]
  - LOCAL SWELLING [None]
  - MALAISE [None]
  - PNEUMONIA [None]
